FAERS Safety Report 13762500 (Version 15)
Quarter: 2021Q4

REPORT INFORMATION
  Report Type: Spontaneous
  Country: US (occurrence: US)
  Receive Date: 20170718
  Receipt Date: 20211112
  Transmission Date: 20220303
  Serious: Yes (Other)
  Sender: FDA-Public Use
  Company Number: US-PFIZER INC-2016340709

PATIENT
  Age: 74 Year
  Sex: Male
  Weight: 73 kg

DRUGS (11)
  1. XELJANZ [Suspect]
     Active Substance: TOFACITINIB CITRATE
     Indication: Rheumatoid arthritis
     Dosage: 10 MG, DAILY (TWO 5MG TABLETS DAILY)
     Route: 048
  2. XELJANZ [Suspect]
     Active Substance: TOFACITINIB CITRATE
     Dosage: 5 MG, 2X/DAY (ONCE IN THE MORNING AND ONCE AT NIGHT
     Route: 048
  3. XELJANZ [Suspect]
     Active Substance: TOFACITINIB CITRATE
     Dosage: 5 MG, 2X/DAY
     Route: 048
  4. XELJANZ [Suspect]
     Active Substance: TOFACITINIB CITRATE
     Dosage: 18 MG, DAILY (8 MG AND 10MG TO TAKE ON A DAILY BASIS)
  5. ALLOPURINOL [Concomitant]
     Active Substance: ALLOPURINOL
     Indication: Gout
     Dosage: 300 MG, 1X/DAY (ONCE AT BEDTIME)
  6. METFORMIN [Concomitant]
     Active Substance: METFORMIN HYDROCHLORIDE
     Indication: Blood glucose increased
     Dosage: 500 MG, 1X/DAY
  7. METOPROLOL SUCCINATE [Concomitant]
     Active Substance: METOPROLOL SUCCINATE
     Indication: Hypertension
     Dosage: 100 MG, 1X/DAY (ONCE IN THE MORNING)
  8. AMLODIPINE [Concomitant]
     Active Substance: AMLODIPINE BESYLATE
     Indication: Blood pressure abnormal
     Dosage: 5 MG, 2X/DAY
  9. BENAZEPRIL [Concomitant]
     Active Substance: BENAZEPRIL HYDROCHLORIDE
     Indication: Blood pressure abnormal
     Dosage: 40 MG, 2X/DAY
  10. FOLIC ACID [Concomitant]
     Active Substance: FOLIC ACID
     Indication: Blood disorder
     Dosage: UNK, DAILY
  11. METHOTREXATE [Concomitant]
     Active Substance: METHOTREXATE
     Indication: Rheumatoid arthritis
     Dosage: 3 DF, WEEKLY [3 TABLETS AT ONCE]

REACTIONS (10)
  - Skin cancer [Unknown]
  - Nephrolithiasis [Recovered/Resolved]
  - Disease recurrence [Recovered/Resolved]
  - Deafness [Unknown]
  - Blood calcium abnormal [Unknown]
  - Blood test abnormal [Unknown]
  - Pain [Unknown]
  - Sensitivity to weather change [Unknown]
  - Illness [Unknown]
  - Off label use [Unknown]

NARRATIVE: CASE EVENT DATE: 20170101
